FAERS Safety Report 12615940 (Version 1)
Quarter: 2016Q3

REPORT INFORMATION
  Report Type: Spontaneous
  Country: US (occurrence: US)
  Receive Date: 20160802
  Receipt Date: 20160802
  Transmission Date: 20161109
  Serious: Yes (Hospitalization, Disabling)
  Sender: FDA-Public Use
  Company Number: US-ENDO PHARMACEUTICALS INC.-2015-002523

PATIENT
  Age: 72 Year
  Sex: Male
  Weight: 145.28 kg

DRUGS (3)
  1. DELATESTRYL [Suspect]
     Active Substance: TESTOSTERONE ENANTHATE
     Indication: ANDROGEN REPLACEMENT THERAPY
     Route: 030
     Dates: start: 201103, end: 201108
  2. TESTOSTERONE CREAM [Suspect]
     Active Substance: TESTOSTERONE
     Indication: ANDROGEN REPLACEMENT THERAPY
     Route: 065
     Dates: start: 201103, end: 201103
  3. TESTOPEL [Suspect]
     Active Substance: TESTOSTERONE
     Indication: ANDROGEN REPLACEMENT THERAPY
     Route: 058
     Dates: start: 201108, end: 201201

REACTIONS (5)
  - Anxiety [Unknown]
  - Deep vein thrombosis [Not Recovered/Not Resolved]
  - Pain [Unknown]
  - Atrial fibrillation [Unknown]
  - Emotional distress [Unknown]

NARRATIVE: CASE EVENT DATE: 20120129
